FAERS Safety Report 7954333-2 (Version None)
Quarter: 2011Q4

REPORT INFORMATION
  Report Type: 
  Country: None (occurrence: None)
  Receive Date: 20111202
  Receipt Date: 20111123
  Transmission Date: 20120403
  Serious: Yes (Other)
  Sender: FDA-Public Use
  Company Number: FR-JNJFOC-20111106844

PATIENT
  Age: 82 Year
  Sex: Female

DRUGS (1)
  1. USTEKINUMAB [Suspect]
     Indication: PSORIASIS
     Dosage: W0, W4 THEN EVERY 12 W
     Route: 065

REACTIONS (2)
  - ECZEMA [None]
  - TOXIC SKIN ERUPTION [None]
